FAERS Safety Report 12141451 (Version 3)
Quarter: 2016Q1

REPORT INFORMATION
  Report Type: Spontaneous
  Country: US (occurrence: US)
  Receive Date: 20160303
  Receipt Date: 20160315
  Transmission Date: 20160526
  Serious: Yes (Other)
  Sender: FDA-Public Use
  Company Number: US-MEDTRONIC-1048636

PATIENT
  Age: 34 Year
  Sex: Female

DRUGS (6)
  1. DIAZEPAM. [Suspect]
     Active Substance: DIAZEPAM
     Route: 048
  2. BACLOFEN UNKNOWN [Suspect]
     Active Substance: BACLOFEN
     Indication: MUSCLE SPASTICITY
     Route: 037
  3. BUPIVACAINE HCL [Suspect]
     Active Substance: BUPIVACAINE HYDROCHLORIDE
     Route: 037
  4. UNSPECIFIED OTHER MEDICATIONS [Suspect]
     Active Substance: UNSPECIFIED INGREDIENT
  5. MORPHINE SULFATE. [Suspect]
     Active Substance: MORPHINE SULFATE
     Route: 037
  6. TRAMADOL. [Suspect]
     Active Substance: TRAMADOL
     Route: 048

REACTIONS (13)
  - Device end of service [None]
  - Electromagnetic interference [None]
  - Pain [None]
  - No therapeutic response [None]
  - Sensitivity to weather change [None]
  - Arthritis [Unknown]
  - Drug withdrawal syndrome [None]
  - Multiple sclerosis relapse [None]
  - Drug dependence [None]
  - Malaise [None]
  - Respiratory arrest [None]
  - Overdose [None]
  - Therapeutic response unexpected [None]

NARRATIVE: CASE EVENT DATE: 20130808
